FAERS Safety Report 6400737-9 (Version None)
Quarter: 2009Q4

REPORT INFORMATION
  Report Type: 
  Country: None (occurrence: None)
  Receive Date: 20091014
  Receipt Date: 20091007
  Transmission Date: 20100525
  Serious: Yes (Death)
  Sender: FDA-Public Use
  Company Number: JP-ABBOTT-09P-087-0602425-00

PATIENT
  Age: 72 Year
  Sex: Male

DRUGS (5)
  1. LEUPLIN SR FOR INJECTION 11.25 MG [Suspect]
     Indication: PROSTATE CANCER STAGE IV
     Route: 058
     Dates: start: 20070410, end: 20071217
  2. LEUPLIN SR FOR INJECTION 11.25 MG [Suspect]
     Dates: start: 20060801, end: 20070313
  3. PROSEXOL [Concomitant]
     Indication: PROSTATE CANCER STAGE IV
     Route: 048
     Dates: end: 20080122
  4. BUFFERIN [Concomitant]
     Indication: DRUG USE FOR UNKNOWN INDICATION
     Route: 048
     Dates: end: 20080122
  5. GASTER D [Concomitant]
     Indication: DRUG USE FOR UNKNOWN INDICATION
     Route: 048
     Dates: end: 20080122

REACTIONS (2)
  - INFECTIVE SPONDYLITIS [None]
  - PSEUDOMEMBRANOUS COLITIS [None]
